FAERS Safety Report 5951364-9 (Version None)
Quarter: 2008Q4

REPORT INFORMATION
  Report Type: 
  Country: None (occurrence: None)
  Receive Date: 20081111
  Receipt Date: 20081111
  Transmission Date: 20090506
  Serious: Yes (Hospitalization)
  Sender: FDA-Public Use
  Company Number: None

PATIENT
  Age: 60 Year
  Sex: Female
  Weight: 63.5036 kg

DRUGS (1)
  1. CRESTOR [Suspect]
     Indication: BLOOD CHOLESTEROL INCREASED
     Dosage: 1 TABLET ONCE DAILY PO
     Route: 048
     Dates: start: 20050827, end: 20050901

REACTIONS (4)
  - ABDOMINAL PAIN UPPER [None]
  - HEPATIC PAIN [None]
  - PANCREATIC DISORDER [None]
  - TYPE 1 DIABETES MELLITUS [None]
